FAERS Safety Report 9559413 (Version 1)
Quarter: 2013Q3

REPORT INFORMATION
  Report Type: Spontaneous
  Country: US (occurrence: None)
  Receive Date: 20130906
  Receipt Date: 20130906
  Transmission Date: 20140515
  Serious: No
  Sender: FDA-Public Use
  Company Number: 163-POMAL-13073760

PATIENT
  Age: 53 Year
  Sex: Female

DRUGS (8)
  1. POMALYST [Suspect]
     Indication: MYELOFIBROSIS
     Dosage: 1 MG, 1 IN 2 D, PO
     Route: 048
     Dates: start: 20130422
  2. COUMADIN (WARFARIN SODIUM) [Concomitant]
  3. SYNTHROID (LEVOTHYROXINE SODIUM) [Concomitant]
  4. CALCIUM (CALCIUM) [Concomitant]
  5. FOLIC ACID (FOLIC ACID) [Concomitant]
  6. OMEPRAZOLE (OMEPRAZOLE) [Concomitant]
  7. PROBIOTIC (BIFIDOBACTERIUM LACTIS) [Concomitant]
  8. FIBER CHOICE (POLYCARBOPHIL CALCIUM) [Concomitant]

REACTIONS (2)
  - Alopecia [None]
  - Chest pain [None]
